FAERS Safety Report 6417919-2 (Version None)
Quarter: 2009Q4

REPORT INFORMATION
  Report Type: 
  Country: None (occurrence: None)
  Receive Date: 20091028
  Receipt Date: 20091021
  Transmission Date: 20100525
  Serious: Yes (Other)
  Sender: FDA-Public Use
  Company Number: B0599268A

PATIENT
  Sex: Female

DRUGS (3)
  1. AUGMENTIN '125' [Suspect]
     Indication: TOOTH EXTRACTION
     Dosage: 2G PER DAY
     Route: 048
     Dates: start: 20090101, end: 20090101
  2. FLAGYL [Concomitant]
     Route: 065
  3. TRAMADOL HCL [Concomitant]
     Route: 065

REACTIONS (2)
  - ENTEROCOLITIS HAEMORRHAGIC [None]
  - RECTAL HAEMORRHAGE [None]
